FAERS Safety Report 23178829 (Version 2)
Quarter: 2023Q4

REPORT INFORMATION
  Report Type: Spontaneous
  Country: JP (occurrence: JP)
  Receive Date: 20231113
  Receipt Date: 20231221
  Transmission Date: 20240109
  Serious: No
  Sender: FDA-Public Use
  Company Number: JP-Eisai-202304831_LEN-EC_P_1

PATIENT
  Age: 62 Year
  Sex: Female

DRUGS (5)
  1. LENVIMA [Suspect]
     Active Substance: LENVATINIB
     Indication: Endometrial cancer
     Route: 048
     Dates: start: 20230705
  2. LENVIMA [Suspect]
     Active Substance: LENVATINIB
     Route: 048
     Dates: start: 202308, end: 202308
  3. LENVIMA [Suspect]
     Active Substance: LENVATINIB
     Route: 048
     Dates: start: 20230906, end: 202311
  4. KEYTRUDA [Suspect]
     Active Substance: PEMBROLIZUMAB
     Indication: Endometrial cancer
     Route: 042
     Dates: start: 20230705
  5. KEYTRUDA [Suspect]
     Active Substance: PEMBROLIZUMAB
     Route: 042
     Dates: start: 2023, end: 202311

REACTIONS (4)
  - Platelet count decreased [Recovered/Resolved]
  - Radiation pneumonitis [Recovering/Resolving]
  - Back pain [Not Recovered/Not Resolved]
  - Diarrhoea [Recovering/Resolving]

NARRATIVE: CASE EVENT DATE: 20230701
